FAERS Safety Report 4898818-4 (Version None)
Quarter: 2006Q1

REPORT INFORMATION
  Report Type: 
  Country: None (occurrence: None)
  Receive Date: 20060202
  Receipt Date: 20060131
  Transmission Date: 20060701
  Serious: Yes (Other)
  Sender: FDA-Public Use
  Company Number: US-GLAXOSMITHKLINE-A0591687A

PATIENT
  Age: 5 Year
  Sex: Female

DRUGS (4)
  1. VENTOLIN [Suspect]
     Dosage: 1TSP FOUR TIMES PER DAY
     Route: 048
     Dates: start: 19950101
  2. DECONGESTANT [Concomitant]
  3. ANTIHISTAMINE [Concomitant]
  4. IBUPROFEN [Concomitant]

REACTIONS (7)
  - BODY HEIGHT DECREASED [None]
  - COUGH [None]
  - CUSHING'S SYNDROME [None]
  - OVARIAN CYST [None]
  - SOCIAL AVOIDANT BEHAVIOUR [None]
  - SWELLING FACE [None]
  - WEIGHT INCREASED [None]
